FAERS Safety Report 8295424-9 (Version None)
Quarter: 2012Q2

REPORT INFORMATION
  Report Type: 
  Country: None (occurrence: None)
  Receive Date: 20120418
  Receipt Date: 20120411
  Transmission Date: 20120825
  Serious: Yes (Other)
  Sender: FDA-Public Use
  Company Number: US-CELGENEUS-163-20785-12041281

PATIENT
  Age: 82 Year
  Sex: Male
  Weight: 70.668 kg

DRUGS (2)
  1. DEXAMETHASONE [Concomitant]
     Indication: DRUG THERAPY
     Route: 065
     Dates: start: 20080901, end: 20090301
  2. THALOMID [Suspect]
     Indication: DRUG THERAPY
     Route: 048
     Dates: start: 20080901, end: 20090301

REACTIONS (2)
  - CARDIOVASCULAR DISORDER [None]
  - MENTAL DISORDER [None]
